FAERS Safety Report 6157682-6 (Version None)
Quarter: 2009Q2

REPORT INFORMATION
  Report Type: 
  Country: None (occurrence: None)
  Receive Date: 20090416
  Receipt Date: 20090407
  Transmission Date: 20091009
  Serious: Yes (Other)
  Sender: FDA-Public Use
  Company Number: US-WATSON-2009-02364

PATIENT
  Age: 58 Year
  Sex: Male

DRUGS (6)
  1. FENTANYL [Suspect]
     Indication: GENERAL ANAESTHESIA
     Dosage: UNK
  2. PROPOFOL [Suspect]
     Indication: GENERAL ANAESTHESIA
     Dosage: UNK
  3. CISATRACURIUM [Suspect]
     Indication: GENERAL ANAESTHESIA
     Dosage: UNK
  4. MIDAZOLAM HCL [Suspect]
     Indication: GENERAL ANAESTHESIA
     Dosage: UNK
  5. CHLORHEXIDINE GLUCONATE [Suspect]
     Indication: DRUG USE FOR UNKNOWN INDICATION
     Dosage: UNK
  6. VANCOMYCIN HCL [Suspect]
     Indication: ANTIBIOTIC PROPHYLAXIS
     Dosage: UNK

REACTIONS (1)
  - ANAPHYLACTIC REACTION [None]
